FAERS Safety Report 6720486-7 (Version None)
Quarter: 2010Q2

REPORT INFORMATION
  Report Type: 
  Country: None (occurrence: None)
  Receive Date: 20100511
  Receipt Date: 20100430
  Transmission Date: 20101027
  Serious: Yes (Death, Life-Threatening, Hospitalization)
  Sender: FDA-Public Use
  Company Number: US-ROCHE-687466

PATIENT
  Sex: Male
  Weight: 72.7 kg

DRUGS (12)
  1. MYCOPHENOLATE MOFETIL [Suspect]
     Dosage: 3 TABLTES IN MORNING AND 3 IN EVENING
     Route: 048
     Dates: start: 20091114
  2. PREDNISONE [Suspect]
     Dosage: 2 IN AM AND ONE IN PM
     Route: 048
  3. AMRIX [Concomitant]
     Route: 048
  4. BACTRIM DS [Concomitant]
     Route: 048
  5. CEPHALEXIN [Concomitant]
     Route: 048
  6. COUMADIN [Concomitant]
     Route: 048
  7. DILTIAZEM [Concomitant]
     Route: 048
  8. FUROSEMIDE [Concomitant]
     Route: 048
  9. K-DUR [Concomitant]
     Route: 048
  10. LISINOPRIL [Concomitant]
     Route: 048
  11. PLAQUENIL [Concomitant]
     Route: 048
  12. PRILOSEC [Concomitant]
     Route: 048

REACTIONS (8)
  - CHOLECYSTITIS [None]
  - GANGRENE [None]
  - HAEMODYNAMIC INSTABILITY [None]
  - HYPOTENSION [None]
  - MENTAL STATUS CHANGES [None]
  - SEPSIS [None]
  - SKIN ULCER [None]
  - TACHYCARDIA [None]
